FAERS Safety Report 4991025-6 (Version None)
Quarter: 2006Q2

REPORT INFORMATION
  Report Type: 
  Country: None (occurrence: None)
  Receive Date: 20060503
  Receipt Date: 20060403
  Transmission Date: 20061013
  Serious: Yes (Hospitalization, Disabling)
  Sender: FDA-Public Use
  Company Number: US-MERCK-0604USA01143

PATIENT
  Age: 49 Year
  Sex: Female
  Weight: 135 kg

DRUGS (6)
  1. VIOXX [Suspect]
     Indication: ARTHRITIS
     Route: 065
     Dates: start: 20000101, end: 20040930
  2. VIOXX [Suspect]
     Route: 065
     Dates: start: 20000101, end: 20040930
  3. ATENOLOL [Concomitant]
     Route: 065
  4. RANITIDINE [Concomitant]
     Route: 065
  5. ZOLOFT [Concomitant]
     Route: 065
  6. MAXZIDE [Concomitant]
     Route: 065

REACTIONS (17)
  - AMAUROSIS FUGAX [None]
  - BACK DISORDER [None]
  - BLINDNESS [None]
  - BRADYCARDIA [None]
  - CARDIAC DISORDER [None]
  - CARPAL TUNNEL SYNDROME [None]
  - CEREBROVASCULAR ACCIDENT [None]
  - CHEST PAIN [None]
  - EXOSTOSIS [None]
  - GOUT [None]
  - HYPERTENSION [None]
  - HYPOTENSION [None]
  - MYOCARDIAL ISCHAEMIA [None]
  - PAIN IN EXTREMITY [None]
  - SCAR [None]
  - STAPHYLOCOCCAL INFECTION [None]
  - TRANSIENT ISCHAEMIC ATTACK [None]
